FAERS Safety Report 11513542 (Version 1)
Quarter: 2015Q3

REPORT INFORMATION
  Report Type: Spontaneous
  Country: JP (occurrence: JP)
  Receive Date: 20150916
  Receipt Date: 20150916
  Transmission Date: 20151125
  Serious: Yes (Death)
  Sender: FDA-Public Use
  Company Number: JP-PFIZER INC-2015304272

PATIENT
  Age: 7 Decade
  Sex: Male

DRUGS (1)
  1. VFEND [Suspect]
     Active Substance: VORICONAZOLE
     Dosage: UNK
     Route: 042
     Dates: start: 20150831

REACTIONS (2)
  - Nausea [Unknown]
  - Shock symptom [Fatal]

NARRATIVE: CASE EVENT DATE: 20150831
